FAERS Safety Report 6510934-X (Version None)
Quarter: 2009Q4

REPORT INFORMATION
  Report Type: 
  Country: None (occurrence: None)
  Receive Date: 20091222
  Receipt Date: 20090204
  Transmission Date: 20100525
  Serious: No
  Sender: FDA-Public Use
  Company Number: US-ASTRAZENECA-2009UW03289

PATIENT
  Age: 59 Year
  Sex: Female

DRUGS (5)
  1. CRESTOR [Suspect]
     Indication: BLOOD CHOLESTEROL INCREASED
     Route: 048
     Dates: start: 20090116
  2. GLUCOPHAGE [Concomitant]
  3. COREG [Concomitant]
  4. NORVASC [Concomitant]
  5. NEXIUM [Concomitant]

REACTIONS (4)
  - ASTHENIA [None]
  - HEADACHE [None]
  - NAUSEA [None]
  - VERTIGO [None]
